FAERS Safety Report 15021733 (Version 2)
Quarter: 2018Q3

REPORT INFORMATION
  Report Type: Spontaneous
  Country: US (occurrence: US)
  Receive Date: 20180618
  Receipt Date: 20180703
  Transmission Date: 20181010
  Serious: No
  Sender: FDA-Public Use
  Company Number: US-GLAXOSMITHKLINE-US2018106507

PATIENT
  Age: 54 Year
  Sex: Female

DRUGS (12)
  1. LAMICTAL [Concomitant]
     Active Substance: LAMOTRIGINE
  2. SALAGEN [Concomitant]
     Active Substance: PILOCARPINE HYDROCHLORIDE
  3. SEROQUEL [Concomitant]
     Active Substance: QUETIAPINE FUMARATE
  4. BENLYSTA [Suspect]
     Active Substance: BELIMUMAB
     Indication: SYSTEMIC LUPUS ERYTHEMATOSUS
     Dosage: UNK UNK, CYC
     Route: 042
     Dates: start: 20180316
  5. OMEPRAZOLE. [Concomitant]
     Active Substance: OMEPRAZOLE
  6. LEVOTHYROXINE. [Concomitant]
     Active Substance: LEVOTHYROXINE
  7. WARFARIN [Concomitant]
     Active Substance: WARFARIN
  8. AMITRIPTYLINE [Concomitant]
     Active Substance: AMITRIPTYLINE
  9. EFFEXOR [Concomitant]
     Active Substance: VENLAFAXINE HYDROCHLORIDE
  10. LITHIUM. [Concomitant]
     Active Substance: LITHIUM
  11. MIRTAZAPINE. [Concomitant]
     Active Substance: MIRTAZAPINE
  12. THIAMINE INTRAVENOUS INFUSION [Concomitant]

REACTIONS (4)
  - Malaise [Recovered/Resolved]
  - Rash [Not Recovered/Not Resolved]
  - Fatigue [Not Recovered/Not Resolved]
  - Bronchitis [Recovered/Resolved]

NARRATIVE: CASE EVENT DATE: 2018
